FAERS Safety Report 19244039 (Version 1)
Quarter: 2021Q2

REPORT INFORMATION
  Report Type: Spontaneous
  Country: US (occurrence: US)
  Receive Date: 20210511
  Receipt Date: 20210511
  Transmission Date: 20210717
  Serious: No
  Sender: FDA-Public Use
  Company Number: US-MYLANLABS-2021M1025027

PATIENT
  Age: 56 Year
  Sex: Female

DRUGS (1)
  1. OLUX?E [Suspect]
     Active Substance: CLOBETASOL PROPIONATE
     Indication: PAIN OF SKIN
     Dosage: 0.5 MILLIGRAM, BID
     Route: 003

REACTIONS (2)
  - Intentional product misuse [Not Recovered/Not Resolved]
  - Product quality issue [Unknown]

NARRATIVE: CASE EVENT DATE: 20210421
